FAERS Safety Report 10948705 (Version 2)
Quarter: 2015Q2

REPORT INFORMATION
  Report Type: Spontaneous
  Country: TR (occurrence: TR)
  Receive Date: 20150324
  Receipt Date: 20150504
  Transmission Date: 20150821
  Serious: Yes (Other)
  Sender: FDA-Public Use
  Company Number: TR-ROCHE-1555468

PATIENT
  Age: 42 Year
  Sex: Female
  Weight: 67 kg

DRUGS (4)
  1. XOLAIR [Suspect]
     Active Substance: OMALIZUMAB
     Dosage: THE DRUG WAS DISCONTINUED AFTER THE 6TH INJECTION.
     Route: 058
     Dates: start: 201411, end: 201411
  2. DELIX (TURKEY) [Concomitant]
  3. DILATREND [Concomitant]
     Active Substance: CARVEDILOL
  4. XOLAIR [Suspect]
     Active Substance: OMALIZUMAB
     Indication: CHRONIC SPONTANEOUS URTICARIA
     Route: 058
     Dates: start: 20140715

REACTIONS (2)
  - Musculoskeletal stiffness [Not Recovered/Not Resolved]
  - Seronegative arthritis [Not Recovered/Not Resolved]

NARRATIVE: CASE EVENT DATE: 20140915
